FAERS Safety Report 6390559-X (Version None)
Quarter: 2009Q4

REPORT INFORMATION
  Report Type: 
  Country: None (occurrence: None)
  Receive Date: 20091005
  Receipt Date: 20091005
  Transmission Date: 20100525
  Serious: Yes (Other)
  Sender: FDA-Public Use
  Company Number: None

PATIENT
  Age: 30 Year
  Sex: Female
  Weight: 56 kg

DRUGS (2)
  1. METOCLOPRAMIDE INJECTION [Suspect]
     Indication: NAUSEA
     Dosage: 10MG EVERY 6 HOURS IV
     Route: 042
     Dates: start: 20090928
  2. PHENYTOIN [Suspect]
     Indication: CONVULSION PROPHYLAXIS
     Dosage: 300MG AT BEDTIME PO
     Route: 048
     Dates: start: 20090923, end: 20090930

REACTIONS (3)
  - BRUXISM [None]
  - PANIC REACTION [None]
  - TRISMUS [None]
